FAERS Safety Report 5608444-7 (Version None)
Quarter: 2008Q1

REPORT INFORMATION
  Report Type: 
  Country: None (occurrence: None)
  Receive Date: 20080125
  Receipt Date: 20080116
  Transmission Date: 20080703
  Serious: Yes (Other)
  Sender: FDA-Public Use
  Company Number: 2008001510

PATIENT
  Age: 8 Year
  Weight: 41.7309 kg

DRUGS (1)
  1. NEOSPORIN [Suspect]
     Dosage: FINGER TIP 2-3 TIMES DAILY, TOPICAL
     Route: 061
     Dates: start: 20080113, end: 20080114

REACTIONS (2)
  - BURNS SECOND DEGREE [None]
  - BURNS THIRD DEGREE [None]
